FAERS Safety Report 18113419 (Version 3)
Quarter: 2021Q3

REPORT INFORMATION
  Report Type: Spontaneous
  Country: US (occurrence: US)
  Receive Date: 20200805
  Receipt Date: 20210805
  Transmission Date: 20211014
  Serious: Yes (Other)
  Sender: FDA-Public Use
  Company Number: US-PFIZER INC-2020295077

PATIENT
  Age: 72 Year
  Sex: Female

DRUGS (3)
  1. INLYTA [Suspect]
     Active Substance: AXITINIB
     Dosage: 5 MG
     Dates: start: 20200713
  2. INLYTA [Suspect]
     Active Substance: AXITINIB
     Dosage: 5 MG
     Dates: end: 20210629
  3. INLYTA [Suspect]
     Active Substance: AXITINIB
     Dosage: 5 MG
     Dates: start: 20200827

REACTIONS (8)
  - Alopecia [Unknown]
  - Fatigue [Unknown]
  - Stomatitis [Unknown]
  - Dizziness [Unknown]
  - Blood pressure increased [Unknown]
  - Haemorrhage [Unknown]
  - Diarrhoea [Unknown]
  - Headache [Unknown]
